FAERS Safety Report 19186767 (Version 1)
Quarter: 2021Q2

REPORT INFORMATION
  Report Type: Spontaneous
  Country: CA (occurrence: CA)
  Receive Date: 20210428
  Receipt Date: 20210428
  Transmission Date: 20210717
  Serious: Yes (Hospitalization, Other)
  Sender: FDA-Public Use
  Company Number: CA-AUROBINDO-AUR-APL-2021-016513

PATIENT
  Age: 56 Year
  Sex: Male

DRUGS (2)
  1. CYCLOBENZAPRINE TABLETS [Suspect]
     Active Substance: CYCLOBENZAPRINE
     Indication: LIMB INJURY
     Dosage: UNK UNK, 3 TIMES A DAY
     Route: 048
  2. TYLENOL WITH CODEINE [Suspect]
     Active Substance: ACETAMINOPHEN\CODEINE PHOSPHATE
     Indication: PRODUCT USED FOR UNKNOWN INDICATION
     Dosage: UNK
     Route: 065

REACTIONS (7)
  - Altered state of consciousness [Unknown]
  - Pyrexia [Unknown]
  - Delirium [Unknown]
  - Tremor [Unknown]
  - Hallucination [Unknown]
  - Chills [Unknown]
  - Confusional state [Unknown]
